FAERS Safety Report 10238477 (Version 10)
Quarter: 2014Q4

REPORT INFORMATION
  Report Type: Report from Study
  Country: CA (occurrence: CA)
  Receive Date: 20140616
  Receipt Date: 20141118
  Transmission Date: 20150528
  Serious: Yes (Death, Hospitalization, Other)
  Sender: FDA-Public Use
  Company Number: PHHY2013CA092124

PATIENT
  Age: 60 Year
  Sex: Male

DRUGS (3)
  1. SANDOSTATIN LAR DEPOT [Suspect]
     Active Substance: OCTREOTIDE ACETATE
     Indication: NEUROENDOCRINE TUMOUR
     Dosage: 30 MG, EVERY 4 WEEKS
     Route: 030
     Dates: start: 20090721, end: 20140531
  2. AFINITOR [Suspect]
     Active Substance: EVEROLIMUS
     Indication: METASTATIC CARCINOID TUMOUR
     Dosage: 5 MG, QD
     Route: 048
     Dates: start: 20110725, end: 201406
  3. AFINITOR [Suspect]
     Active Substance: EVEROLIMUS
     Indication: NEUROENDOCRINE TUMOUR
     Dosage: 10 MG, UNK
     Route: 048

REACTIONS (16)
  - Pneumonia [Unknown]
  - Cough [Unknown]
  - Escherichia infection [Unknown]
  - Blood pressure increased [Unknown]
  - Liver abscess [Unknown]
  - Pyrexia [Unknown]
  - Right ventricular failure [Unknown]
  - Weight decreased [Unknown]
  - Infection [Unknown]
  - Thrombocytopenia [Unknown]
  - Neutropenia [Unknown]
  - Lethargy [Unknown]
  - Death [Fatal]
  - Blood pressure decreased [Unknown]
  - Hepatic function abnormal [Unknown]
  - Heart rate increased [Unknown]

NARRATIVE: CASE EVENT DATE: 20140206
